FAERS Safety Report 7758857-2 (Version None)
Quarter: 2011Q3

REPORT INFORMATION
  Report Type: 
  Country: None (occurrence: None)
  Receive Date: 20110919
  Receipt Date: 20110907
  Transmission Date: 20111222
  Serious: Yes (Hospitalization)
  Sender: FDA-Public Use
  Company Number: CA-US-EMD SERONO, INC.-7081903

PATIENT
  Sex: Male

DRUGS (3)
  1. DIAZEPAM [Concomitant]
  2. GABAPENTIN [Concomitant]
  3. REBIF [Suspect]
     Indication: RELAPSING-REMITTING MULTIPLE SCLEROSIS
     Route: 058
     Dates: start: 19981215, end: 20110902

REACTIONS (3)
  - URINARY TRACT INFECTION [None]
  - URINARY RETENTION [None]
  - BACTERIAL SEPSIS [None]
